FAERS Safety Report 8376231-5 (Version None)
Quarter: 2012Q2

REPORT INFORMATION
  Report Type: 
  Country: None (occurrence: None)
  Receive Date: 20120522
  Receipt Date: 20120514
  Transmission Date: 20120825
  Serious: Yes (Other)
  Sender: FDA-Public Use
  Company Number: US-BAYER-2012-047298

PATIENT
  Age: 16 Year
  Sex: Female

DRUGS (2)
  1. BEYAZ [Suspect]
     Indication: PAIN
     Dosage: UNK
     Route: 048
     Dates: start: 20120301
  2. BEYAZ [Suspect]
     Indication: BLEEDING TIME PROLONGED

REACTIONS (2)
  - PAIN [None]
  - GENITAL HAEMORRHAGE [None]
